FAERS Safety Report 21244750 (Version 1)
Quarter: 2022Q3

REPORT INFORMATION
  Report Type: Spontaneous
  Country: FR (occurrence: FR)
  Receive Date: 20220823
  Receipt Date: 20220823
  Transmission Date: 20221027
  Serious: Yes (Other)
  Sender: FDA-Public Use
  Company Number: FR-AFSSAPS-LY20210909

PATIENT
  Age: 29 Year
  Sex: Male
  Weight: 78 kg

DRUGS (5)
  1. ASCLERA [Suspect]
     Active Substance: POLIDOCANOL
     Indication: Varicocele repair
     Route: 042
     Dates: start: 20210210, end: 20210210
  2. VISIPAQUE [Suspect]
     Active Substance: IODIXANOL
     Indication: Venogram
     Dosage: IN TOTAL 30 ML
     Route: 042
     Dates: start: 20210210, end: 20210210
  3. SODIUM BICARBONATE RENAUDIN [Concomitant]
     Indication: Product used for unknown indication
     Dosage: IN TOTAL
     Route: 041
     Dates: start: 20210210, end: 20210210
  4. HEPARIN SODIUM 5000 IU [Concomitant]
     Indication: Product used for unknown indication
     Dosage: IN TOTAL
     Route: 041
     Dates: start: 20210210, end: 20210210
  5. LIDOCAINE [Concomitant]
     Active Substance: LIDOCAINE
     Indication: Local anaesthesia
     Dosage: IN TOTAL
     Route: 058
     Dates: start: 20210210, end: 20210210

REACTIONS (3)
  - Bradycardia [Recovered/Resolved]
  - Gastrointestinal pain [Recovered/Resolved]
  - Malaise [Recovered/Resolved]

NARRATIVE: CASE EVENT DATE: 20210210
